FAERS Safety Report 19599142 (Version 5)
Quarter: 2021Q4

REPORT INFORMATION
  Report Type: Report from Study
  Country: ES (occurrence: ES)
  Receive Date: 20210722
  Receipt Date: 20211021
  Transmission Date: 20220303
  Serious: Yes (Hospitalization)
  Sender: FDA-Public Use
  Company Number: ES-ROCHE-2873579

PATIENT
  Age: 53 Year
  Sex: Female
  Weight: 67 kg

DRUGS (4)
  1. ATEZOLIZUMAB [Suspect]
     Active Substance: ATEZOLIZUMAB
     Indication: Triple negative breast cancer
     Dosage: ON DAYS 1 AND 15
     Route: 042
     Dates: start: 20210330, end: 20210601
  2. BEVACIZUMAB [Suspect]
     Active Substance: BEVACIZUMAB
     Indication: Triple negative breast cancer
     Dosage: ON DAYS 1 AND 15
     Route: 042
     Dates: start: 20210330, end: 20210630
  3. PACLITAXEL [Suspect]
     Active Substance: PACLITAXEL
     Indication: Triple negative breast cancer
     Dosage: ON DAYS 1, 8 AND 15
     Route: 042
     Dates: start: 20210330, end: 20210609
  4. PREDNISONE [Concomitant]
     Active Substance: PREDNISONE
     Indication: Hepatotoxicity
     Route: 048
     Dates: start: 20210630

REACTIONS (2)
  - Asthenia [Not Recovered/Not Resolved]
  - Thrombocytopenia [Unknown]

NARRATIVE: CASE EVENT DATE: 20210612
